FAERS Safety Report 10312280 (Version 1)
Quarter: 2014Q3

REPORT INFORMATION
  Report Type: Spontaneous
  Country: EE (occurrence: EE)
  Receive Date: 20140718
  Receipt Date: 20140718
  Transmission Date: 20150326
  Serious: Yes (Hospitalization, Other)
  Sender: FDA-Public Use
  Company Number: EE-009507513-1407EST006975

PATIENT
  Age: 66 Year
  Sex: Female

DRUGS (3)
  1. PEGINTRON [Suspect]
     Active Substance: PEGINTERFERON ALFA-2B
     Dosage: 150 MICROGRAM, QW
     Dates: start: 20140404, end: 20140509
  2. REBETOL [Suspect]
     Active Substance: RIBAVIRIN
     Dosage: 1200 MG DAILY
     Route: 048
     Dates: start: 20140404, end: 20140509
  3. TELAPREVIR [Suspect]
     Active Substance: TELAPREVIR
     Dosage: 375 MG, SIX TABLETS A DAY
     Dates: start: 20140404, end: 20140509

REACTIONS (3)
  - Blood product transfusion [Unknown]
  - Blood product transfusion [Unknown]
  - Renal impairment [Unknown]

NARRATIVE: CASE EVENT DATE: 20140502
